FAERS Safety Report 26164007 (Version 1)
Quarter: 2025Q4

REPORT INFORMATION
  Report Type: Report from Study
  Country: CA (occurrence: CA)
  Receive Date: 20251216
  Receipt Date: 20251216
  Transmission Date: 20260118
  Serious: Yes (Hospitalization)
  Sender: ABBVIE
  Company Number: CA-ABBVIE-6591219

PATIENT
  Sex: Female

DRUGS (1)
  1. RINVOQ [Suspect]
     Active Substance: UPADACITINIB
     Indication: Giant cell arteritis
     Dosage: FORM STRENGTH: 15MILLIGRAM
     Route: 048

REACTIONS (2)
  - Kidney infection [Not Recovered/Not Resolved]
  - Pyrexia [Not Recovered/Not Resolved]
